FAERS Safety Report 7776695 (Version 3)
Quarter: 2013Q1

REPORT INFORMATION
  Report Type: Spontaneous
  Country: US (occurrence: US)
  Receive Date: 20110127
  Receipt Date: 20130130
  Transmission Date: 20140127
  Serious: Yes (Other)
  Sender: FDA-Public Use
  Company Number: US-BAYER-2011-007651

PATIENT
  Age: 38 Year
  Sex: Female

DRUGS (15)
  1. YAZ [Suspect]
     Indication: ACNE
     Dosage: UNK
     Route: 048
     Dates: start: 20070611, end: 20080301
  2. LEVOTHYROXINE [Concomitant]
     Dosage: 200 ?G, UNK
  3. CLINDAMYCIN [Concomitant]
     Dosage: 300 MG, UNK
     Dates: start: 20080123
  4. NAPROXEN [Concomitant]
     Dosage: 500 MG, UNK
     Dates: start: 20080123
  5. CLINDAMYCIN HYDROCHLORIDE [Concomitant]
  6. NAPROSYN [Concomitant]
  7. SYNTHROID [Concomitant]
  8. CLENIA [Concomitant]
  9. ORTHO CYCLEN [Concomitant]
  10. DIFFERIN [Concomitant]
  11. WELLBUTRIN SR [Concomitant]
  12. LODINE [Concomitant]
  13. MINOCYCLINE HCL [Concomitant]
  14. ALEVE [Concomitant]
  15. ANTIBIOTICS [Concomitant]

REACTIONS (4)
  - Thrombophlebitis superficial [Recovering/Resolving]
  - Pain [Recovering/Resolving]
  - Injury [Recovering/Resolving]
  - Emotional distress [Recovering/Resolving]
